FAERS Safety Report 4874628-9 (Version None)
Quarter: 2006Q1

REPORT INFORMATION
  Report Type: 
  Country: None (occurrence: None)
  Receive Date: 20060106
  Receipt Date: 20050113
  Transmission Date: 20060701
  Serious: Yes (Hospitalization, Disabling, Other)
  Sender: FDA-Public Use
  Company Number: US-MERCK-0501USA02246

PATIENT
  Age: 50 Year
  Sex: Male
  Weight: 118 kg

DRUGS (1)
  1. VIOXX [Suspect]
     Indication: BACK PAIN
     Route: 048
     Dates: start: 20030901, end: 20031001

REACTIONS (4)
  - CARDIAC DISORDER [None]
  - CHEST PAIN [None]
  - CONVULSION [None]
  - MYOCARDIAL INFARCTION [None]
